FAERS Safety Report 7450119-6 (Version None)
Quarter: 2011Q2

REPORT INFORMATION
  Report Type: 
  Country: None (occurrence: None)
  Receive Date: 20110502
  Receipt Date: 20110417
  Transmission Date: 20111010
  Serious: No
  Sender: FDA-Public Use
  Company Number: US-B.I. PHARMACEUTICALS,INC./RIDGEFIELD-2011-BP-11021BP

PATIENT
  Sex: Female

DRUGS (2)
  1. SPIRIVA [Suspect]
     Indication: CHRONIC OBSTRUCTIVE PULMONARY DISEASE
     Dates: start: 20090101
  2. SPIRIVA [Suspect]
     Indication: EMPHYSEMA
     Route: 048
     Dates: start: 20110417

REACTIONS (1)
  - INCORRECT ROUTE OF DRUG ADMINISTRATION [None]
